FAERS Safety Report 14690581 (Version 1)
Quarter: 2018Q1

REPORT INFORMATION
  Report Type: Spontaneous
  Country: US (occurrence: US)
  Receive Date: 20180328
  Receipt Date: 20180328
  Transmission Date: 20180509
  Serious: No
  Sender: FDA-Public Use
  Company Number: US-TARO-2017TAR00896

PATIENT
  Age: 63 Year
  Sex: Female
  Weight: 48.53 kg

DRUGS (2)
  1. SYNTHROID [Concomitant]
     Active Substance: LEVOTHYROXINE SODIUM
     Indication: HYPOTHYROIDISM
     Dosage: 112 ?G, 1X/DAY
  2. FLUOROURACIL TOPICAL CREAM USP 5% [Suspect]
     Active Substance: FLUOROURACIL
     Indication: ACTINIC KERATOSIS
     Dosage: UNK, 1X/DAY IN THE EVENING
     Route: 061
     Dates: start: 2017, end: 20170928

REACTIONS (13)
  - Oropharyngeal pain [Not Recovered/Not Resolved]
  - Lip swelling [Recovering/Resolving]
  - Tongue erythema [Not Recovered/Not Resolved]
  - Glossodynia [Not Recovered/Not Resolved]
  - Ageusia [Recovering/Resolving]
  - Throat irritation [Recovered/Resolved]
  - Hypersensitivity [Recovering/Resolving]
  - Application site irritation [Recovered/Resolved]
  - Rhinorrhoea [Recovered/Resolved]
  - Mouth swelling [Recovering/Resolving]
  - Pharyngeal erythema [Not Recovered/Not Resolved]
  - Sneezing [Recovered/Resolved]
  - Application site erythema [Recovered/Resolved]

NARRATIVE: CASE EVENT DATE: 20170930
